FAERS Safety Report 21412250 (Version 1)
Quarter: 2022Q4

REPORT INFORMATION
  Report Type: Spontaneous
  Country: US (occurrence: None)
  Receive Date: 20221004
  Receipt Date: 20221004
  Transmission Date: 20230113
  Serious: No
  Sender: FDA-Public Use
  Company Number: None

PATIENT
  Age: 78 Year
  Sex: Male
  Weight: 81.65 kg

DRUGS (5)
  1. MELPHALAN [Suspect]
     Active Substance: MELPHALAN
     Indication: Hypogammaglobulinaemia
     Dosage: FREQUENCY : DAILY;?
     Route: 048
     Dates: start: 202202
  2. DARZALEX [Concomitant]
     Active Substance: DARATUMUMAB
  3. FASPRO [Concomitant]
  4. PREDNISONE [Concomitant]
     Active Substance: PREDNISONE
  5. VELCADE [Concomitant]
     Active Substance: BORTEZOMIB

REACTIONS (2)
  - Therapy interrupted [None]
  - White blood cell count decreased [None]
